FAERS Safety Report 21593174 (Version 2)
Quarter: 2022Q4

REPORT INFORMATION
  Report Type: Spontaneous
  Country: FR (occurrence: FR)
  Receive Date: 20221114
  Receipt Date: 20221122
  Transmission Date: 20230112
  Serious: Yes (Other)
  Sender: FDA-Public Use
  Company Number: FR-TAKEDA-2022TUS041371

PATIENT
  Sex: Female
  Weight: 71 kg

DRUGS (5)
  1. DEXAMETHASONE [Suspect]
     Active Substance: DEXAMETHASONE
     Indication: Hodgkin^s disease
     Dosage: UNK
     Route: 065
  2. BRENTUXIMAB VEDOTIN [Suspect]
     Active Substance: BRENTUXIMAB VEDOTIN
     Indication: Hodgkin^s disease
     Dosage: 1.8 MILLIGRAM/KILOGRAM, Q3WEEKS
     Route: 042
     Dates: start: 20220615, end: 20220801
  3. BRENTUXIMAB VEDOTIN [Suspect]
     Active Substance: BRENTUXIMAB VEDOTIN
     Dosage: 1.8 MILLIGRAM/KILOGRAM
     Route: 042
     Dates: start: 20220808
  4. CISPLATIN [Suspect]
     Active Substance: CISPLATIN
     Indication: Hodgkin^s disease
     Dosage: UNK
     Route: 065
  5. CYTARABINE [Suspect]
     Active Substance: CYTARABINE
     Indication: Hodgkin^s disease
     Dosage: UNK
     Route: 065

REACTIONS (16)
  - Pneumonitis [Unknown]
  - C-reactive protein increased [Unknown]
  - Prothrombin time abnormal [Unknown]
  - Haemoglobin abnormal [Unknown]
  - Blood alkaline phosphatase abnormal [Unknown]
  - Gamma-glutamyltransferase abnormal [Unknown]
  - Toxicity to various agents [Recovering/Resolving]
  - Procalcitonin abnormal [Unknown]
  - Blood lactate dehydrogenase abnormal [Unknown]
  - Blood calcium abnormal [Unknown]
  - White blood cell disorder [Unknown]
  - Platelet disorder [Unknown]
  - Blood albumin abnormal [Unknown]
  - Ejection fraction decreased [Unknown]
  - Serum ferritin abnormal [Unknown]
  - Hypoalbuminaemia [Unknown]

NARRATIVE: CASE EVENT DATE: 20220615
